FAERS Safety Report 9338567 (Version 2)
Quarter: 2013Q2

REPORT INFORMATION
  Report Type: Report from Study
  Country: IL (occurrence: IL)
  Receive Date: 20130610
  Receipt Date: 20130624
  Transmission Date: 20140414
  Serious: Yes (Death)
  Sender: FDA-Public Use
  Company Number: IL-ROCHE-1234982

PATIENT
  Age: 46 Year
  Sex: Female

DRUGS (1)
  1. BEVACIZUMAB [Suspect]
     Indication: MESOTHELIOMA
     Route: 042
     Dates: start: 20130604, end: 20130604

REACTIONS (1)
  - Disease progression [Fatal]
